FAERS Safety Report 6233250-2 (Version None)
Quarter: 2009Q2

REPORT INFORMATION
  Report Type: 
  Country: None (occurrence: None)
  Receive Date: 20090617
  Receipt Date: 20090609
  Transmission Date: 20091009
  Serious: Yes (Hospitalization)
  Sender: FDA-Public Use
  Company Number: US-WATSON-2009-04244

PATIENT
  Age: 19 Month
  Sex: Female

DRUGS (1)
  1. FENTANYL-25 [Suspect]
     Indication: ACCIDENTAL EXPOSURE
     Dosage: 25 MCG PATCH, SINGLE
     Route: 062

REACTIONS (4)
  - ACCIDENTAL DRUG INTAKE BY CHILD [None]
  - ACCIDENTAL OVERDOSE [None]
  - DRUG TOXICITY [None]
  - LEUKOENCEPHALOPATHY [None]
